FAERS Safety Report 10206473 (Version 1)
Quarter: 2014Q2

REPORT INFORMATION
  Report Type: Spontaneous
  Country: US (occurrence: None)
  Receive Date: 20140528
  Receipt Date: 20140528
  Transmission Date: 20141212
  Serious: No
  Sender: FDA-Public Use
  Company Number: None

PATIENT
  Age: 47 Year
  Sex: Male

DRUGS (1)
  1. INTERFERON BETA [Suspect]
     Dates: start: 201009, end: 20121022

REACTIONS (2)
  - Alanine aminotransferase increased [None]
  - Autoimmune hepatitis [None]
